FAERS Safety Report 9411994 (Version 1)
Quarter: 2013Q3

REPORT INFORMATION
  Report Type: Spontaneous
  Country: CH (occurrence: CH)
  Receive Date: 20130722
  Receipt Date: 20130722
  Transmission Date: 20140515
  Serious: Yes (Hospitalization)
  Sender: FDA-Public Use
  Company Number: CH-JNJFOC-20130709586

PATIENT
  Age: 51 Year
  Sex: Male
  Weight: 55 kg

DRUGS (15)
  1. XARELTO [Suspect]
     Indication: EMBOLISM VENOUS
     Route: 048
     Dates: start: 20121104, end: 20121212
  2. XARELTO [Suspect]
     Indication: EMBOLISM VENOUS
     Route: 048
     Dates: start: 20120910, end: 20121031
  3. XARELTO [Suspect]
     Indication: PERIPHERAL ARTERY THROMBOSIS
     Route: 048
     Dates: start: 20120910, end: 20121031
  4. XARELTO [Suspect]
     Indication: PERIPHERAL ARTERY THROMBOSIS
     Route: 048
     Dates: start: 20121104, end: 20121212
  5. XARELTO [Suspect]
     Indication: ILIAC ARTERY EMBOLISM
     Route: 048
     Dates: start: 20121104, end: 20121212
  6. XARELTO [Suspect]
     Indication: ILIAC ARTERY EMBOLISM
     Route: 048
     Dates: start: 20120910, end: 20121031
  7. TRIATEC [Suspect]
     Indication: ESSENTIAL HYPERTENSION
     Route: 065
     Dates: end: 20121214
  8. DIGOXIN [Concomitant]
     Route: 048
     Dates: end: 20121031
  9. TEMESTA [Concomitant]
     Route: 048
  10. BENERVA [Concomitant]
     Route: 048
  11. PANTOZOL [Concomitant]
     Route: 048
  12. TOREM [Concomitant]
     Route: 048
  13. PRADIF [Concomitant]
     Indication: BENIGN PROSTATIC HYPERPLASIA
     Route: 065
     Dates: end: 20121214
  14. ALDACTONE [Concomitant]
     Indication: ESSENTIAL HYPERTENSION
     Route: 048
     Dates: start: 2007, end: 20121212
  15. DILATREND [Concomitant]
     Route: 048

REACTIONS (2)
  - Hepatocellular injury [Recovered/Resolved]
  - Hyperbilirubinaemia [Recovered/Resolved]
